FAERS Safety Report 8349736-0 (Version None)
Quarter: 2012Q2

REPORT INFORMATION
  Report Type: 
  Country: None (occurrence: None)
  Receive Date: 20120510
  Receipt Date: 20120507
  Transmission Date: 20120825
  Serious: Yes (Death, Hospitalization, Other)
  Sender: FDA-Public Use
  Company Number: US-CELGENEUS-163-21880-11071406

PATIENT
  Sex: Male

DRUGS (6)
  1. LEVAQUIN [Concomitant]
     Dosage: 250 MILLIGRAM
     Route: 048
  2. SPIRIVA HANDIHLR [Concomitant]
     Route: 065
  3. OMEPRAZOLE [Concomitant]
     Dosage: 20 MILLIGRAM
     Route: 048
  4. HUMIRA [Concomitant]
     Indication: RHEUMATOID ARTHRITIS
     Route: 065
     Dates: start: 20080101, end: 20110401
  5. REVLIMID [Suspect]
     Dosage: 10 MILLIGRAM
     Route: 048
     Dates: start: 20110519, end: 20110625
  6. ARAVA [Concomitant]
     Indication: RHEUMATOID ARTHRITIS
     Route: 065
     Dates: start: 20060101, end: 20110301

REACTIONS (10)
  - DISEASE PROGRESSION [None]
  - RENAL FAILURE [None]
  - FEBRILE NEUTROPENIA [None]
  - ACUTE RESPIRATORY DISTRESS SYNDROME [None]
  - RESPIRATORY FAILURE [None]
  - ATRIAL FIBRILLATION [None]
  - RESPIRATORY ACIDOSIS [None]
  - MYELODYSPLASTIC SYNDROME [None]
  - SEPTIC SHOCK [None]
  - LUNG INFECTION [None]
